FAERS Safety Report 8276745-2 (Version None)
Quarter: 2012Q2

REPORT INFORMATION
  Report Type: 
  Country: None (occurrence: None)
  Receive Date: 20120405
  Receipt Date: 20120329
  Transmission Date: 20120825
  Serious: Yes (Life-Threatening)
  Sender: FDA-Public Use
  Company Number: 2012SP016137

PATIENT
  Age: 24 Year
  Sex: Female

DRUGS (1)
  1. LORATADINE AND PSEUDOEPHEDRINE SULFATE [Suspect]
     Indication: ANTIALLERGIC THERAPY
     Dosage: 10 DF;QD;PO
     Route: 048
     Dates: start: 20120223

REACTIONS (5)
  - BOREDOM [None]
  - DEPRESSED MOOD [None]
  - TOXICITY TO VARIOUS AGENTS [None]
  - SUICIDE ATTEMPT [None]
  - INTENTIONAL OVERDOSE [None]
